FAERS Safety Report 9432459 (Version 1)
Quarter: 2013Q3

REPORT INFORMATION
  Report Type: Spontaneous
  Country: ES (occurrence: ES)
  Receive Date: 20130731
  Receipt Date: 20130731
  Transmission Date: 20140515
  Serious: Yes (Other)
  Sender: FDA-Public Use
  Company Number: ES-JNJFOC-20130715497

PATIENT
  Sex: 0

DRUGS (15)
  1. RISPERIDONE [Suspect]
     Indication: BIPOLAR DISORDER
     Route: 065
  2. RISPERIDONE [Suspect]
     Indication: MAJOR DEPRESSION
     Route: 065
  3. RISPERIDONE [Suspect]
     Indication: PSYCHOTIC DISORDER
     Route: 065
  4. RISPERIDONE [Suspect]
     Indication: SCHIZOPHRENIFORM DISORDER
     Route: 065
  5. RISPERIDONE [Suspect]
     Indication: SCHIZOPHRENIA
     Route: 065
  6. OLANZAPINE [Suspect]
     Indication: BIPOLAR DISORDER
     Route: 065
  7. OLANZAPINE [Suspect]
     Indication: MAJOR DEPRESSION
     Route: 065
  8. OLANZAPINE [Suspect]
     Indication: PSYCHOTIC DISORDER
     Route: 065
  9. OLANZAPINE [Suspect]
     Indication: SCHIZOPHRENIFORM DISORDER
     Route: 065
  10. OLANZAPINE [Suspect]
     Indication: SCHIZOPHRENIA
     Route: 065
  11. QUETIAPINE [Suspect]
     Indication: BIPOLAR DISORDER
     Route: 065
  12. QUETIAPINE [Suspect]
     Indication: MAJOR DEPRESSION
     Route: 065
  13. QUETIAPINE [Suspect]
     Indication: PSYCHOTIC DISORDER
     Route: 065
  14. QUETIAPINE [Suspect]
     Indication: SCHIZOPHRENIFORM DISORDER
     Route: 065
  15. QUETIAPINE [Suspect]
     Indication: SCHIZOPHRENIA
     Route: 065

REACTIONS (7)
  - Nervous system disorder [Unknown]
  - Autonomic nervous system imbalance [Unknown]
  - Mental disorder [Unknown]
  - Body mass index increased [Unknown]
  - Adverse reaction [Unknown]
  - Weight increased [Unknown]
  - Drug ineffective [Unknown]
